FAERS Safety Report 4360373-5 (Version None)
Quarter: 2004Q2

REPORT INFORMATION
  Report Type: 
  Country: None (occurrence: None)
  Receive Date: 20040517
  Receipt Date: 20040430
  Transmission Date: 20050107
  Serious: Yes (Death, Congenital Anomaly)
  Sender: FDA-Public Use
  Company Number: 2004BL003552

PATIENT
  Sex: Female
  Weight: 0.45 kg

DRUGS (1)
  1. MINOXIDIL [Suspect]

REACTIONS (16)
  - ABORTION INDUCED [None]
  - CEREBRAL HAEMORRHAGE FOETAL [None]
  - CEREBRAL INFARCTION FOETAL [None]
  - CEREBRAL VENTRICLE DILATATION [None]
  - COMPLICATIONS OF MATERNAL EXPOSURE TO THERAPEUTIC DRUGS [None]
  - CONGENITAL AORTIC VALVE STENOSIS [None]
  - CONGENITAL CEREBELLAR AGENESIS [None]
  - DEMYELINATION [None]
  - EXTRADURAL HAEMATOMA [None]
  - FOETAL DISORDER [None]
  - GASTROINTESTINAL MALFORMATION [None]
  - HEART DISEASE CONGENITAL [None]
  - MATERNAL DRUGS AFFECTING FOETUS [None]
  - PLACENTAL INSUFFICIENCY [None]
  - SKULL MALFORMATION [None]
  - ULTRASOUND SCAN ABNORMAL [None]
